FAERS Safety Report 24802517 (Version 2)
Quarter: 2025Q1

REPORT INFORMATION
  Report Type: Spontaneous
  Country: US (occurrence: US)
  Receive Date: 20250103
  Receipt Date: 20250104
  Transmission Date: 20250409
  Serious: Yes (Disabling, Other)
  Sender: AMGEN
  Company Number: US-AMGEN-USASP2024255322

PATIENT
  Age: 75 Year
  Sex: Male

DRUGS (1)
  1. REPATHA [Suspect]
     Active Substance: EVOLOCUMAB
     Indication: Blood cholesterol abnormal
     Dosage: UNK, Q2WK
     Route: 065
     Dates: start: 202401, end: 202412

REACTIONS (6)
  - Infection [Recovering/Resolving]
  - Salivary duct obstruction [Unknown]
  - Device difficult to use [Unknown]
  - Urinary tract infection [Unknown]
  - Paronychia [Unknown]
  - Hordeolum [Unknown]

NARRATIVE: CASE EVENT DATE: 20240101
